FAERS Safety Report 18490399 (Version 1)
Quarter: 2020Q4

REPORT INFORMATION
  Report Type: Spontaneous
  Country: US (occurrence: US)
  Receive Date: 20201111
  Receipt Date: 20201111
  Transmission Date: 20210114
  Serious: Yes (Other)
  Sender: FDA-Public Use
  Company Number: None

PATIENT
  Age: 84 Year
  Sex: Male
  Weight: 119.6 kg

DRUGS (3)
  1. STERILE WATER FOR INJECTION (DILUENT) [Concomitant]
     Dates: start: 20201110
  2. REMDESIVIR. [Suspect]
     Active Substance: REMDESIVIR
     Indication: COVID-19
     Route: 042
     Dates: start: 20201110
  3. NORMAL SALINE (DILUENT) [Concomitant]
     Dates: start: 20201110

REACTIONS (2)
  - Infusion site oedema [None]
  - Infusion site erythema [None]

NARRATIVE: CASE EVENT DATE: 20201110
